FAERS Safety Report 11871850 (Version 1)
Quarter: 2015Q4

REPORT INFORMATION
  Report Type: Spontaneous
  Country: US (occurrence: US)
  Receive Date: 20151228
  Receipt Date: 20151228
  Transmission Date: 20160305
  Serious: No
  Sender: FDA-Public Use
  Company Number: US-GLAXOSMITHKLINE-US2015182117

PATIENT
  Sex: Male
  Weight: 108.86 kg

DRUGS (2)
  1. CHANTIX [Suspect]
     Active Substance: VARENICLINE TARTRATE
     Indication: EX-TOBACCO USER
     Dosage: 5 MG, BID
     Route: 048
  2. NICORETTE [Suspect]
     Active Substance: NICOTINE
     Indication: PRODUCT USED FOR UNKNOWN INDICATION
     Dosage: UNK
     Route: 065

REACTIONS (5)
  - Coma [None]
  - Wrong technique in product usage process [None]
  - Seizure [None]
  - Drug ineffective [Unknown]
  - Incorrect dose administered [None]
